FAERS Safety Report 6786186-2 (Version None)
Quarter: 2010Q2

REPORT INFORMATION
  Report Type: 
  Country: None (occurrence: None)
  Receive Date: 20100622
  Receipt Date: 20100622
  Transmission Date: 20101027
  Serious: Yes (Hospitalization)
  Sender: FDA-Public Use
  Company Number: None

PATIENT
  Age: 25 Year
  Sex: Female
  Weight: 83.9154 kg

DRUGS (2)
  1. BACTRUM N/A N/A [Suspect]
     Indication: ACNE
     Dosage: DAILY PO
     Route: 048
     Dates: start: 20080101
  2. ADVANTAGE BREAKOUT CLEANSER 10% BENZYL PEROXIDE CLEAN AND CLEAR [Suspect]
     Indication: ACNE
     Dosage: LESS THAN DIME SIZE DAILY TOP
     Route: 061
     Dates: start: 20100617, end: 20100618

REACTIONS (14)
  - APPLICATION SITE DISCHARGE [None]
  - APPLICATION SITE ERYTHEMA [None]
  - APPLICATION SITE PAIN [None]
  - APPLICATION SITE REACTION [None]
  - APPLICATION SITE SWELLING [None]
  - AURICULAR SWELLING [None]
  - DECREASED APPETITE [None]
  - HYPERSENSITIVITY [None]
  - LABELLED DRUG-DRUG INTERACTION MEDICATION ERROR [None]
  - LIP SWELLING [None]
  - NAUSEA [None]
  - RASH ERYTHEMATOUS [None]
  - SWELLING FACE [None]
  - VOMITING [None]
